FAERS Safety Report 21797221 (Version 4)
Quarter: 2023Q1

REPORT INFORMATION
  Report Type: Spontaneous
  Country: US (occurrence: US)
  Receive Date: 20221230
  Receipt Date: 20230323
  Transmission Date: 20230418
  Serious: No
  Sender: FDA-Public Use
  Company Number: US-SANOFI-01423364

PATIENT
  Age: 62 Year
  Sex: Female
  Weight: 96.7 kg

DRUGS (2)
  1. DUPIXENT [Suspect]
     Active Substance: DUPILUMAB
     Indication: Asthma
     Dosage: 300 MG, QOW
     Route: 058
     Dates: start: 20211223
  2. CLAZAKIZUMAB [Concomitant]
     Active Substance: CLAZAKIZUMAB
     Dosage: UNK

REACTIONS (5)
  - Fatigue [Unknown]
  - Product storage error [Unknown]
  - Malaise [Unknown]
  - Asthma [Unknown]
  - Poor quality product administered [Unknown]

NARRATIVE: CASE EVENT DATE: 20221222
